FAERS Safety Report 4579677-6 (Version None)
Quarter: 2005Q1

REPORT INFORMATION
  Report Type: 
  Country: None (occurrence: None)
  Receive Date: 20050210
  Receipt Date: 20050127
  Transmission Date: 20050727
  Serious: No
  Sender: FDA-Public Use
  Company Number: 2005-0007936

PATIENT
  Sex: Male
  Weight: 4.23 kg

DRUGS (6)
  1. TENOFOVIR DISOPROXIL FUMARATE (TENOFOVIR DISOPROXIL FUMARATE) [Suspect]
     Indication: HIV INFECTION
     Dosage: 300 MG, 1 IN 1 D, ORAL
     Route: 048
     Dates: start: 20040622
  2. VIDEX EC [Concomitant]
  3. VIRAMUNE [Concomitant]
  4. EPIVIR [Concomitant]
  5. AZT [Concomitant]
  6. KALETRA [Concomitant]

REACTIONS (2)
  - DRUG EXPOSURE DURING PREGNANCY [None]
  - NO ADVERSE DRUG EFFECT [None]
